FAERS Safety Report 5196424-8 (Version None)
Quarter: 2006Q4

REPORT INFORMATION
  Report Type: 
  Country: None (occurrence: None)
  Receive Date: 20061226
  Receipt Date: 20040908
  Transmission Date: 20070319
  Serious: Yes (Hospitalization)
  Sender: FDA-Public Use
  Company Number: 2006BH015123

PATIENT
  Sex: Female

DRUGS (3)
  1. WATER FOR INJECTION (WATER FOR INJECTION) [Suspect]
     Indication: DRUG USE FOR UNKNOWN INDICATION
     Dosage: 1 CC
     Dates: start: 20040904, end: 20040904
  2. KATROL (NO PREF. NAME) [Suspect]
     Indication: DRUG USE FOR UNKNOWN INDICATION
     Dates: start: 20040904, end: 20040904
  3. MRI CONTRAST SOLUTION (NO PREF. NAME) [Suspect]
     Indication: NUCLEAR MAGNETIC RESONANCE IMAGING
     Dates: start: 20040904, end: 20040904

REACTIONS (5)
  - CHEST PAIN [None]
  - DIZZINESS [None]
  - DYSPNOEA [None]
  - HEADACHE [None]
  - HYPERTENSION [None]
